FAERS Safety Report 8785652 (Version 4)
Quarter: 2013Q2

REPORT INFORMATION
  Report Type: Spontaneous
  Country: US (occurrence: US)
  Receive Date: 20120914
  Receipt Date: 20130510
  Transmission Date: 20140414
  Serious: Yes (Death, Hospitalization)
  Sender: FDA-Public Use
  Company Number: US-B.I. PHARMACEUTICALS,INC./RIDGEFIELD-2012-BP-22646BP

PATIENT
  Sex: Male
  Weight: 77.11 kg

DRUGS (6)
  1. PRADAXA [Suspect]
     Indication: ATRIAL FIBRILLATION
     Dosage: 300 MG
     Route: 048
     Dates: start: 20110517, end: 201112
  2. MULTAQ [Concomitant]
     Dosage: 800 MG
     Route: 048
     Dates: start: 2011
  3. BYSTOLIC [Concomitant]
     Dosage: 5 MG
     Route: 048
     Dates: start: 2011
  4. ADVAIR [Concomitant]
     Dates: start: 1985
  5. PROAIR [Concomitant]
     Dates: start: 1985
  6. PREDNISONE [Concomitant]
     Dosage: 10 MG
     Dates: start: 1987

REACTIONS (5)
  - Death [Fatal]
  - Haemorrhage [Unknown]
  - Abdominal wall haematoma [Unknown]
  - Gastrointestinal haemorrhage [Unknown]
  - Haemorrhagic diathesis [Unknown]
